FAERS Safety Report 13075595 (Version 4)
Quarter: 2018Q4

REPORT INFORMATION
  Report Type: Spontaneous
  Country: US (occurrence: US)
  Receive Date: 20161230
  Receipt Date: 20181211
  Transmission Date: 20190204
  Serious: Yes (Life-Threatening, Other)
  Sender: FDA-Public Use
  Company Number: US-ASTRAZENECA-2016SF36395

PATIENT
  Age: 57 Year
  Sex: Female

DRUGS (103)
  1. PANTOPRAZOLE [Suspect]
     Active Substance: PANTOPRAZOLE
     Indication: GASTROOESOPHAGEAL REFLUX DISEASE
     Route: 065
     Dates: start: 20100713
  2. TRAMADOL. [Concomitant]
     Active Substance: TRAMADOL
     Indication: CARDIOVASCULAR DISORDER
     Route: 065
     Dates: start: 20140912
  3. PRAVASTATIN. [Concomitant]
     Active Substance: PRAVASTATIN
     Indication: BLOOD CHOLESTEROL
     Route: 065
     Dates: start: 2013
  4. LANTUS [Concomitant]
     Active Substance: INSULIN GLARGINE
     Indication: DIABETES MELLITUS
     Dosage: 100 UNITS
     Route: 065
     Dates: start: 2013, end: 2015
  5. VITAMIN D2 [Concomitant]
     Active Substance: ERGOCALCIFEROL
     Dosage: 1.25 MG
  6. POTASSIUM CHLORIDE. [Concomitant]
     Active Substance: POTASSIUM CHLORIDE
     Dosage: 10 MEQ CAPSULE
  7. DIOVAN [Concomitant]
     Active Substance: VALSARTAN
     Indication: GASTROOESOPHAGEAL REFLUX DISEASE
     Route: 065
     Dates: start: 2014
  8. DIOVAN [Concomitant]
     Active Substance: VALSARTAN
     Indication: DIABETES MELLITUS
     Route: 065
     Dates: start: 2015, end: 2016
  9. DIOVAN [Concomitant]
     Active Substance: VALSARTAN
     Indication: BLOOD PRESSURE MEASUREMENT
     Route: 065
     Dates: start: 2006, end: 2008
  10. DIOVAN [Concomitant]
     Active Substance: VALSARTAN
     Indication: DIABETES MELLITUS
     Route: 065
     Dates: start: 2005, end: 2011
  11. DIOVAN [Concomitant]
     Active Substance: VALSARTAN
     Indication: BLOOD PRESSURE MEASUREMENT
     Route: 065
     Dates: start: 2008, end: 2011
  12. DIOVAN [Concomitant]
     Active Substance: VALSARTAN
     Indication: DYSPEPSIA
     Route: 065
     Dates: start: 2008, end: 2011
  13. AMITRIPTYLINE HYDROCHLORIDE. [Concomitant]
     Active Substance: AMITRIPTYLINE HYDROCHLORIDE
     Dosage: 25 MG TABLET
  14. HYDROCODONE BITARTRATE AND ACETAMINOPHEN [Concomitant]
     Active Substance: ACETAMINOPHEN\HYDROCODONE BITARTRATE
     Dosage: 7.5MG/750MG TABS
  15. CYCLOBENZAPRINE. [Concomitant]
     Active Substance: CYCLOBENZAPRINE
     Dosage: 10MG TABLETS
  16. COENZYME Q10 [Concomitant]
     Active Substance: UBIDECARENONE
     Indication: CARDIAC DISORDER
  17. SIMVASTATIN. [Concomitant]
     Active Substance: SIMVASTATIN
     Indication: BLOOD CHOLESTEROL
     Dates: start: 2008, end: 2011
  18. NEXIUM [Suspect]
     Active Substance: ESOMEPRAZOLE MAGNESIUM
     Indication: DYSPEPSIA
     Dosage: 30 MG GENERIC
     Route: 065
     Dates: start: 20160425
  19. PANTOPRAZOLE [Suspect]
     Active Substance: PANTOPRAZOLE
     Indication: DYSPEPSIA
     Route: 065
     Dates: start: 20100713
  20. METOPROLOL. [Concomitant]
     Active Substance: METOPROLOL
  21. DIOVAN [Concomitant]
     Active Substance: VALSARTAN
     Indication: BLOOD PRESSURE MEASUREMENT
     Route: 065
     Dates: start: 2014
  22. DIOVAN [Concomitant]
     Active Substance: VALSARTAN
     Indication: DYSPEPSIA
     Route: 065
     Dates: start: 2015, end: 2016
  23. DIOVAN [Concomitant]
     Active Substance: VALSARTAN
     Indication: GASTROOESOPHAGEAL REFLUX DISEASE
     Route: 065
     Dates: start: 2015, end: 2016
  24. DIOVAN [Concomitant]
     Active Substance: VALSARTAN
     Indication: ANTACID THERAPY
     Route: 065
     Dates: start: 2006, end: 2008
  25. DIOVAN [Concomitant]
     Active Substance: VALSARTAN
     Indication: GASTROOESOPHAGEAL REFLUX DISEASE
     Route: 065
     Dates: start: 2006, end: 2008
  26. DIOVAN [Concomitant]
     Active Substance: VALSARTAN
     Indication: ANTACID THERAPY
     Route: 065
     Dates: start: 2005, end: 2011
  27. DIOVAN [Concomitant]
     Active Substance: VALSARTAN
     Indication: BLOOD CHOLESTEROL
     Route: 065
     Dates: start: 2005, end: 2011
  28. DIOVAN [Concomitant]
     Active Substance: VALSARTAN
     Indication: GASTROOESOPHAGEAL REFLUX DISEASE
     Route: 065
     Dates: start: 2005, end: 2011
  29. TIZANIDINE. [Concomitant]
     Active Substance: TIZANIDINE
     Dosage: 4 MG TABLET
  30. CETIRIZINE HYDROCHLORIDE. [Concomitant]
     Active Substance: CETIRIZINE HYDROCHLORIDE
     Dosage: 10 MG TABLET
  31. NEXIUM [Suspect]
     Active Substance: ESOMEPRAZOLE MAGNESIUM
     Indication: GASTROOESOPHAGEAL REFLUX DISEASE
     Route: 048
     Dates: start: 20141124
  32. AMLODIPINE BESYLATE. [Concomitant]
     Active Substance: AMLODIPINE BESYLATE
     Dosage: 10 MG TAB
  33. DIOVAN [Concomitant]
     Active Substance: VALSARTAN
     Indication: GASTROOESOPHAGEAL REFLUX DISEASE
     Route: 065
     Dates: start: 2015, end: 2016
  34. DIOVAN [Concomitant]
     Active Substance: VALSARTAN
     Indication: BLOOD PRESSURE MEASUREMENT
     Route: 065
     Dates: start: 2015, end: 2016
  35. DIOVAN [Concomitant]
     Active Substance: VALSARTAN
     Indication: ANTACID THERAPY
     Route: 065
     Dates: start: 2008, end: 2011
  36. DIOVAN [Concomitant]
     Active Substance: VALSARTAN
     Indication: BLOOD CHOLESTEROL
     Route: 065
     Dates: start: 2008, end: 2011
  37. DIOVAN [Concomitant]
     Active Substance: VALSARTAN
     Indication: DIABETES MELLITUS
     Route: 065
     Dates: start: 2006, end: 2008
  38. DIOVAN [Concomitant]
     Active Substance: VALSARTAN
     Indication: BLOOD PRESSURE MEASUREMENT
     Route: 065
     Dates: start: 2011, end: 2011
  39. DIOVAN [Concomitant]
     Active Substance: VALSARTAN
     Indication: ANTACID THERAPY
     Route: 065
     Dates: start: 2011, end: 2011
  40. DIOVAN [Concomitant]
     Active Substance: VALSARTAN
     Indication: BLOOD CHOLESTEROL
     Route: 065
     Dates: start: 2011, end: 2011
  41. DIOVAN [Concomitant]
     Active Substance: VALSARTAN
     Indication: GASTROOESOPHAGEAL REFLUX DISEASE
     Route: 065
     Dates: start: 2011, end: 2011
  42. ALLOPURINOL. [Concomitant]
     Active Substance: ALLOPURINOL
     Dosage: 100 MG TABLET
  43. MAGNESIUM [Concomitant]
     Active Substance: MAGNESIUM
  44. TUMS [Concomitant]
     Active Substance: CALCIUM CARBONATE
  45. TEKTURNA [Concomitant]
     Active Substance: ALISKIREN HEMIFUMARATE
     Indication: BLOOD PRESSURE MEASUREMENT
     Dates: start: 2011
  46. LYRICA [Concomitant]
     Active Substance: PREGABALIN
     Indication: PAIN
     Route: 065
     Dates: start: 2015, end: 2016
  47. NOVOLOG [Concomitant]
     Active Substance: INSULIN ASPART
     Dosage: 100 UNITS
  48. EXFORGE [Concomitant]
     Active Substance: AMLODIPINE BESYLATE\VALSARTAN
  49. DIOVAN [Concomitant]
     Active Substance: VALSARTAN
     Indication: DIABETES MELLITUS
     Route: 065
     Dates: start: 2008, end: 2011
  50. DIOVAN [Concomitant]
     Active Substance: VALSARTAN
     Indication: BLOOD PRESSURE MEASUREMENT
     Route: 065
     Dates: start: 2008, end: 2011
  51. DIOVAN [Concomitant]
     Active Substance: VALSARTAN
     Indication: GASTROOESOPHAGEAL REFLUX DISEASE
     Route: 065
     Dates: start: 2008, end: 2011
  52. DIOVAN [Concomitant]
     Active Substance: VALSARTAN
     Indication: BLOOD PRESSURE MEASUREMENT
     Route: 065
     Dates: start: 2008, end: 2011
  53. DIOVAN [Concomitant]
     Active Substance: VALSARTAN
     Indication: DIABETES MELLITUS
     Route: 065
     Dates: start: 2011, end: 2011
  54. CLONIDINE. [Concomitant]
     Active Substance: CLONIDINE
     Dosage: 0.1 MG TABLET
  55. DILTIAZEM. [Concomitant]
     Active Substance: DILTIAZEM
     Dosage: 30 MG TABLET
  56. ETODOLAC. [Concomitant]
     Active Substance: ETODOLAC
     Dosage: 400MG TABLETS
  57. NEXIUM [Suspect]
     Active Substance: ESOMEPRAZOLE MAGNESIUM
     Indication: DYSPEPSIA
     Dosage: 30 MG GENERIC
     Route: 065
     Dates: start: 20170425
  58. FUROSEMIDE. [Concomitant]
     Active Substance: FUROSEMIDE
     Indication: DIURETIC THERAPY
     Route: 065
     Dates: start: 2013, end: 2016
  59. DIOVAN [Concomitant]
     Active Substance: VALSARTAN
     Indication: BLOOD CHOLESTEROL
     Route: 065
     Dates: start: 2014
  60. DIOVAN [Concomitant]
     Active Substance: VALSARTAN
     Indication: DYSPEPSIA
     Route: 065
     Dates: start: 2014
  61. DIOVAN [Concomitant]
     Active Substance: VALSARTAN
     Indication: ANTACID THERAPY
     Route: 065
     Dates: start: 2015, end: 2016
  62. DIOVAN [Concomitant]
     Active Substance: VALSARTAN
     Indication: DYSPEPSIA
     Route: 065
     Dates: start: 2015, end: 2016
  63. DIOVAN [Concomitant]
     Active Substance: VALSARTAN
     Indication: DYSPEPSIA
     Route: 065
     Dates: start: 2008, end: 2011
  64. DIOVAN [Concomitant]
     Active Substance: VALSARTAN
     Indication: GASTROOESOPHAGEAL REFLUX DISEASE
     Route: 065
     Dates: start: 2008, end: 2011
  65. DIOVAN [Concomitant]
     Active Substance: VALSARTAN
     Indication: DYSPEPSIA
     Route: 065
     Dates: start: 2011, end: 2011
  66. PEPCID [Concomitant]
     Active Substance: FAMOTIDINE
  67. ROLAIDS [Concomitant]
     Active Substance: CALCIUM CARBONATE\MAGNESIUM HYDROXIDE
  68. LIPITOR [Concomitant]
     Active Substance: ATORVASTATIN CALCIUM
     Indication: BLOOD CHOLESTEROL
     Dates: start: 2006, end: 2008
  69. NEXIUM [Suspect]
     Active Substance: ESOMEPRAZOLE MAGNESIUM
     Indication: GASTROOESOPHAGEAL REFLUX DISEASE
     Route: 048
  70. NEXIUM [Suspect]
     Active Substance: ESOMEPRAZOLE MAGNESIUM
     Indication: GASTROOESOPHAGEAL REFLUX DISEASE
     Route: 048
     Dates: start: 20141031
  71. NEXIUM [Suspect]
     Active Substance: ESOMEPRAZOLE MAGNESIUM
     Indication: GASTROOESOPHAGEAL REFLUX DISEASE
     Dosage: 30 MG GENERIC
     Route: 065
     Dates: start: 20160425
  72. NEXIUM [Suspect]
     Active Substance: ESOMEPRAZOLE MAGNESIUM
     Indication: GASTROOESOPHAGEAL REFLUX DISEASE
     Dosage: 30 MG GENERIC
     Route: 065
     Dates: start: 20170425
  73. PRILOSEC [Suspect]
     Active Substance: OMEPRAZOLE MAGNESIUM
     Route: 048
  74. TRAMADOL. [Concomitant]
     Active Substance: TRAMADOL
     Indication: PAIN
     Route: 065
     Dates: start: 20140912
  75. CRESTOR [Concomitant]
     Active Substance: ROSUVASTATIN CALCIUM
     Indication: BLOOD CHOLESTEROL
     Route: 065
     Dates: start: 2013, end: 2015
  76. DIOVAN [Concomitant]
     Active Substance: VALSARTAN
     Indication: BLOOD PRESSURE MEASUREMENT
     Route: 065
     Dates: start: 2015, end: 2016
  77. DIOVAN [Concomitant]
     Active Substance: VALSARTAN
     Indication: DIABETES MELLITUS
     Route: 065
     Dates: start: 2015, end: 2016
  78. DIOVAN [Concomitant]
     Active Substance: VALSARTAN
     Indication: BLOOD CHOLESTEROL
     Route: 065
     Dates: start: 2015, end: 2016
  79. DIOVAN [Concomitant]
     Active Substance: VALSARTAN
     Indication: DYSPEPSIA
     Route: 065
     Dates: start: 2006, end: 2008
  80. DIOVAN [Concomitant]
     Active Substance: VALSARTAN
     Indication: DYSPEPSIA
     Route: 065
     Dates: start: 2005, end: 2011
  81. DIOVAN [Concomitant]
     Active Substance: VALSARTAN
     Indication: DIABETES MELLITUS
     Route: 065
     Dates: start: 2008, end: 2011
  82. DIOVAN [Concomitant]
     Active Substance: VALSARTAN
     Indication: BLOOD CHOLESTEROL
     Route: 065
     Dates: start: 2008, end: 2011
  83. DIOVAN [Concomitant]
     Active Substance: VALSARTAN
     Indication: GASTROOESOPHAGEAL REFLUX DISEASE
     Route: 065
     Dates: start: 2008, end: 2011
  84. JANUVIA [Concomitant]
     Active Substance: SITAGLIPTIN PHOSPHATE
     Indication: DIABETES MELLITUS
     Dates: start: 2008, end: 2011
  85. NEXIUM [Suspect]
     Active Substance: ESOMEPRAZOLE MAGNESIUM
     Indication: DYSPEPSIA
     Route: 048
     Dates: start: 20100713, end: 20141031
  86. NEXIUM [Suspect]
     Active Substance: ESOMEPRAZOLE MAGNESIUM
     Indication: DYSPEPSIA
     Route: 048
     Dates: start: 20141124
  87. METFORMIN HYDROCHLORIDE. [Concomitant]
     Active Substance: METFORMIN HYDROCHLORIDE
     Indication: DIABETES MELLITUS
     Route: 065
     Dates: start: 2013, end: 2014
  88. XARELTO [Concomitant]
     Active Substance: RIVAROXABAN
     Indication: ANTICOAGULATION DRUG LEVEL THERAPEUTIC
     Route: 065
     Dates: start: 2013, end: 2016
  89. DIOVAN [Concomitant]
     Active Substance: VALSARTAN
     Indication: ANTACID THERAPY
     Route: 065
     Dates: start: 2015, end: 2016
  90. DIOVAN [Concomitant]
     Active Substance: VALSARTAN
     Indication: BLOOD PRESSURE MEASUREMENT
     Route: 065
     Dates: start: 2005, end: 2011
  91. DIOVAN [Concomitant]
     Active Substance: VALSARTAN
     Indication: ANTACID THERAPY
     Route: 065
     Dates: start: 2008, end: 2011
  92. DIOVAN [Concomitant]
     Active Substance: VALSARTAN
     Indication: BLOOD CHOLESTEROL
     Route: 065
     Dates: start: 2008, end: 2011
  93. VITAMIN B12 [Concomitant]
     Active Substance: CYANOCOBALAMIN
  94. NEXIUM [Suspect]
     Active Substance: ESOMEPRAZOLE MAGNESIUM
     Indication: GASTROOESOPHAGEAL REFLUX DISEASE
     Route: 048
     Dates: start: 20100713, end: 20141031
  95. NEXIUM [Suspect]
     Active Substance: ESOMEPRAZOLE MAGNESIUM
     Indication: DYSPEPSIA
     Route: 048
  96. NEXIUM [Suspect]
     Active Substance: ESOMEPRAZOLE MAGNESIUM
     Indication: DYSPEPSIA
     Route: 048
     Dates: start: 20141031
  97. DIOVAN [Concomitant]
     Active Substance: VALSARTAN
     Indication: DIABETES MELLITUS
     Route: 065
     Dates: start: 2014
  98. DIOVAN [Concomitant]
     Active Substance: VALSARTAN
     Indication: ANTACID THERAPY
     Route: 065
     Dates: start: 2014
  99. DIOVAN [Concomitant]
     Active Substance: VALSARTAN
     Indication: BLOOD CHOLESTEROL
     Route: 065
     Dates: start: 2015, end: 2016
  100. DIOVAN [Concomitant]
     Active Substance: VALSARTAN
     Indication: BLOOD CHOLESTEROL
     Route: 065
     Dates: start: 2006, end: 2008
  101. DIOVAN [Concomitant]
     Active Substance: VALSARTAN
     Indication: DIABETES MELLITUS
     Route: 065
     Dates: start: 2008, end: 2011
  102. DIOVAN [Concomitant]
     Active Substance: VALSARTAN
     Indication: ANTACID THERAPY
     Route: 065
     Dates: start: 2008, end: 2011
  103. DIOVAN [Concomitant]
     Active Substance: VALSARTAN
     Indication: DYSPEPSIA
     Route: 065
     Dates: start: 2008, end: 2011

REACTIONS (4)
  - Chronic kidney disease [Unknown]
  - Tubulointerstitial nephritis [Not Recovered/Not Resolved]
  - Diabetic ketoacidosis [Unknown]
  - Renal failure [Not Recovered/Not Resolved]

NARRATIVE: CASE EVENT DATE: 2014
